FAERS Safety Report 5800280-1 (Version None)
Quarter: 2008Q3

REPORT INFORMATION
  Report Type: 
  Country: None (occurrence: None)
  Receive Date: 20080703
  Receipt Date: 20080627
  Transmission Date: 20090109
  Serious: Yes (Other)
  Sender: FDA-Public Use
  Company Number: PHEH2007US13906

PATIENT
  Sex: Female
  Weight: 50.34 kg

DRUGS (2)
  1. TRILEPTAL [Suspect]
     Indication: CONVULSION
     Dosage: 600 MG, BID
     Route: 048
     Dates: start: 20060101
  2. FOLATE SODIUM [Concomitant]
     Indication: SUPPLEMENTATION THERAPY
     Dosage: 4 MG, UNK

REACTIONS (6)
  - ANAEMIA [None]
  - CAESAREAN SECTION [None]
  - DRUG EXPOSURE DURING PREGNANCY [None]
  - HAEMATOMA [None]
  - NORMAL NEWBORN [None]
  - TRANSFUSION [None]
